FAERS Safety Report 8200656-1 (Version None)
Quarter: 2012Q1

REPORT INFORMATION
  Report Type: 
  Country: None (occurrence: None)
  Receive Date: 20120312
  Receipt Date: 20120305
  Transmission Date: 20120608
  Serious: Yes (Other)
  Sender: FDA-Public Use
  Company Number: GB-TEVA-326277ISR

PATIENT
  Age: 84 Year
  Sex: Female

DRUGS (7)
  1. ALBUTEROL [Concomitant]
     Dosage: UNKNOWN
     Route: 065
  2. AMLODIPINE [Concomitant]
     Dosage: UNKNOWN
     Route: 065
  3. ASPIRIN [Concomitant]
     Dosage: UNKNOWN
     Route: 065
  4. DONEPEZIL HCL [Suspect]
     Dosage: UNKNOWN
     Route: 065
  5. LISINOPRIL [Concomitant]
     Dosage: UNKNOWN
     Route: 065
  6. FLUTICASONE PROPIONATE/SALMETEROL [Concomitant]
     Dosage: UNKNOWN
     Route: 065
  7. LANSOPRAZOLE [Concomitant]
     Dosage: UNKNOWN
     Route: 065

REACTIONS (2)
  - SKIN LESION [None]
  - LINEAR IGA DISEASE [None]
